FAERS Safety Report 20075976 (Version 1)
Quarter: 2021Q4

REPORT INFORMATION
  Report Type: Spontaneous
  Country: US (occurrence: None)
  Receive Date: 20211115
  Receipt Date: 20211115
  Transmission Date: 20220303
  Serious: No
  Sender: FDA-Public Use
  Company Number: None

PATIENT
  Sex: Female

DRUGS (1)
  1. CAPECITABINE [Suspect]
     Active Substance: CAPECITABINE
     Indication: Hepatic neoplasm
     Dosage: FREQUENCY : TWICE A DAY;?
     Route: 048
     Dates: start: 20211022

REACTIONS (11)
  - Chest discomfort [None]
  - Chest pain [None]
  - Nausea [None]
  - Vomiting [None]
  - Diarrhoea [None]
  - Neuralgia [None]
  - Hypotension [None]
  - Feeling cold [None]
  - Dizziness [None]
  - Syncope [None]
  - Therapy cessation [None]
